FAERS Safety Report 20422181 (Version 1)
Quarter: 2022Q1

REPORT INFORMATION
  Report Type: Other
  Country: US (occurrence: None)
  Receive Date: 20220203
  Receipt Date: 20220203
  Transmission Date: 20220423
  Serious: No
  Sender: FDA-Public Use
  Company Number: US-ROCHE-3014135

PATIENT
  Age: 39 Year
  Sex: Female

DRUGS (6)
  1. OCREVUS [Suspect]
     Active Substance: OCRELIZUMAB
     Indication: Multiple sclerosis
     Route: 065
     Dates: start: 20200511
  2. OCREVUS [Suspect]
     Active Substance: OCRELIZUMAB
     Route: 065
     Dates: start: 20200525
  3. OCREVUS [Suspect]
     Active Substance: OCRELIZUMAB
     Route: 065
     Dates: start: 20201127
  4. OCREVUS [Suspect]
     Active Substance: OCRELIZUMAB
     Route: 065
     Dates: start: 20210528
  5. OCREVUS [Suspect]
     Active Substance: OCRELIZUMAB
     Route: 065
     Dates: start: 20211126
  6. GILENYA [Concomitant]
     Active Substance: FINGOLIMOD HYDROCHLORIDE
     Indication: Multiple sclerosis

REACTIONS (1)
  - COVID-19 [Recovered/Resolved]

NARRATIVE: CASE EVENT DATE: 20220104
